FAERS Safety Report 23569473 (Version 1)
Quarter: 2024Q1

REPORT INFORMATION
  Report Type: Spontaneous
  Country: US (occurrence: US)
  Receive Date: 20240227
  Receipt Date: 20240227
  Transmission Date: 20240409
  Serious: No
  Sender: FDA-Public Use
  Company Number: US-TEVA-VS-3136805

PATIENT
  Age: 61 Year
  Sex: Female

DRUGS (1)
  1. HYDROXOCOBALAMIN [Suspect]
     Active Substance: HYDROXOCOBALAMIN
     Indication: Transcobalamin deficiency
     Dosage: 1000 MCG/ML
     Route: 065

REACTIONS (4)
  - Liver disorder [Unknown]
  - Vitamin B12 increased [Unknown]
  - Expired product administered [Not Recovered/Not Resolved]
  - Product prescribing issue [Not Recovered/Not Resolved]
